FAERS Safety Report 17428574 (Version 4)
Quarter: 2021Q1

REPORT INFORMATION
  Report Type: Spontaneous
  Country: BR (occurrence: BR)
  Receive Date: 20200217
  Receipt Date: 20210318
  Transmission Date: 20210419
  Serious: Yes (Other)
  Sender: FDA-Public Use
  Company Number: BR-BIOMARINAP-BR-2020-128518

PATIENT
  Age: 23 Year
  Sex: Male
  Weight: 59.6 kg

DRUGS (5)
  1. DONAREN [Concomitant]
     Active Substance: TRAZODONE HYDROCHLORIDE
     Indication: PRODUCT USED FOR UNKNOWN INDICATION
     Dosage: 12.5 MILLIGRAM, QD
  2. DIPYRONE [Concomitant]
     Active Substance: DIPYRONE
     Indication: ARTHRALGIA
     Dosage: 1 GRAM
  3. VIMIZIM [Suspect]
     Active Substance: ELOSULFASE ALFA
     Indication: MUCOPOLYSACCHARIDOSIS IV
     Dosage: 114 MILLIGRAM, QW
     Route: 042
     Dates: start: 20120823
  4. RECONTER [Concomitant]
     Active Substance: ESCITALOPRAM OXALATE
     Indication: PRODUCT USED FOR UNKNOWN INDICATION
     Dosage: 5 MILLIGRAM, QD
  5. DIPYRONE [Concomitant]
     Active Substance: DIPYRONE
     Indication: BACK PAIN

REACTIONS (5)
  - Nosocomial infection [Recovering/Resolving]
  - Candida infection [Recovered/Resolved]
  - Pain [Recovering/Resolving]
  - Device related infection [Recovering/Resolving]
  - Quality of life decreased [Recovering/Resolving]

NARRATIVE: CASE EVENT DATE: 201911
